FAERS Safety Report 8600404-7 (Version None)
Quarter: 2012Q3

REPORT INFORMATION
  Report Type: 
  Country: None (occurrence: None)
  Receive Date: 20120817
  Receipt Date: 20120815
  Transmission Date: 20120928
  Serious: Yes (Other)
  Sender: FDA-Public Use
  Company Number: US-PFIZER INC-2012200932

PATIENT
  Sex: Female

DRUGS (4)
  1. PROZAC [Suspect]
     Indication: DEPRESSION
     Dosage: 40 MG, DAILY
  2. CHANTIX [Suspect]
     Dosage: 1 MG, 2X/DAY
     Dates: start: 20120801
  3. INSULIN [Concomitant]
     Indication: TYPE 1 DIABETES MELLITUS
     Dosage: UNK
  4. CHANTIX [Suspect]
     Dosage: 0.5 MG, DAILY
     Dates: start: 20120801, end: 20120801

REACTIONS (6)
  - DEPRESSION [None]
  - HEADACHE [None]
  - AGITATION [None]
  - FATIGUE [None]
  - NAUSEA [None]
  - IRRITABILITY [None]
